FAERS Safety Report 25904028 (Version 2)
Quarter: 2025Q4

REPORT INFORMATION
  Report Type: Spontaneous
  Country: EU (occurrence: EU)
  Receive Date: 20251010
  Receipt Date: 20251016
  Transmission Date: 20260117
  Serious: Yes (Other)
  Sender: Haleon PLC
  Company Number: EU-KENVUE-20251002299

PATIENT
  Sex: Male

DRUGS (2)
  1. NICORETTE [Suspect]
     Active Substance: NICOTINE
     Indication: Product used for unknown indication
     Dosage: GUMS 5-10 A DAY /ABOUT 300 GUMS, ROA: UNKNOWN,
     Dates: start: 20250705
  2. NICORETTE [Suspect]
     Active Substance: NICOTINE
     Indication: Tobacco user
     Dosage: SPRAY 6-10 TIMES PER DAY (ALREADY USED 4 NICORETE SPRAYS)
     Route: 065
     Dates: start: 20250705

REACTIONS (2)
  - Drug dependence [Not Recovered/Not Resolved]
  - Product use in unapproved indication [Unknown]

NARRATIVE: CASE EVENT DATE: 20250705
